FAERS Safety Report 7573260-6 (Version None)
Quarter: 2011Q2

REPORT INFORMATION
  Report Type: 
  Country: None (occurrence: None)
  Receive Date: 20110627
  Receipt Date: 20110613
  Transmission Date: 20111010
  Serious: Yes (Other)
  Sender: FDA-Public Use
  Company Number: PHHY2011US52295

PATIENT
  Sex: Female

DRUGS (11)
  1. SPIRIVA [Concomitant]
  2. ASPIRIN [Concomitant]
  3. RECLAST [Suspect]
     Dosage: UNK
     Route: 042
  4. WATER PILLS [Concomitant]
  5. CRESTOR [Concomitant]
  6. RECLAST [Suspect]
     Dosage: UNK
  7. COREG [Concomitant]
  8. ADVAIR DISKUS 100/50 [Concomitant]
  9. LOTREL [Concomitant]
  10. CLONAZEPAM [Concomitant]
  11. LEXAPRO [Concomitant]

REACTIONS (9)
  - SCIATICA [None]
  - PAIN IN EXTREMITY [None]
  - NERVE COMPRESSION [None]
  - MUSCULOSKELETAL PAIN [None]
  - PAIN [None]
  - JAW DISORDER [None]
  - ERYTHEMA [None]
  - HERPES ZOSTER [None]
  - ARTHRALGIA [None]
